FAERS Safety Report 18606044 (Version 2)
Quarter: 2020Q4

REPORT INFORMATION
  Report Type: Spontaneous
  Country: IE (occurrence: IE)
  Receive Date: 20201211
  Receipt Date: 20201229
  Transmission Date: 20210114
  Serious: Yes (Other)
  Sender: FDA-Public Use
  Company Number: IE-ACCORD-210367

PATIENT
  Age: 79 Year
  Sex: Female

DRUGS (13)
  1. COLECALCIFEROL [Suspect]
     Active Substance: CHOLECALCIFEROL
     Indication: VITAMIN SUPPLEMENTATION
     Dosage: 800 INTERNATIONAL UNIT, QD
     Route: 065
  2. ERGOCALCIFEROL. [Suspect]
     Active Substance: ERGOCALCIFEROL
     Indication: VITAMIN D DEFICIENCY
     Dates: start: 201606, end: 201608
  3. ERGOCALCIFEROL. [Concomitant]
     Active Substance: ERGOCALCIFEROL
     Indication: VITAMIN SUPPLEMENTATION
     Dosage: 50000 INTERNATIONAL UNIT, QD (1.25 MG QD)
     Route: 065
  4. CINACALCET/CINACALCET HYDROCHLORIDE [Suspect]
     Active Substance: CINACALCET\CINACALCET HYDROCHLORIDE
     Indication: HYPERPARATHYROIDISM PRIMARY
     Dosage: 30 MILLIGRAM, QD
     Dates: start: 200705
  5. CINACALCET/CINACALCET HYDROCHLORIDE [Concomitant]
     Active Substance: CINACALCET\CINACALCET HYDROCHLORIDE
     Indication: HYPERPARATHYROIDISM PRIMARY
     Dates: start: 201608, end: 201803
  6. CINACALCET/CINACALCET HYDROCHLORIDE [Concomitant]
     Active Substance: CINACALCET\CINACALCET HYDROCHLORIDE
     Indication: HYPERPARATHYROIDISM PRIMARY
     Dates: start: 201410, end: 201603
  7. CINACALCET/CINACALCET HYDROCHLORIDE [Suspect]
     Active Substance: CINACALCET\CINACALCET HYDROCHLORIDE
     Indication: HYPERPARATHYROIDISM PRIMARY
     Dosage: 30 MILLIGRAM, QD
  8. CINACALCET/CINACALCET HYDROCHLORIDE [Concomitant]
     Active Substance: CINACALCET\CINACALCET HYDROCHLORIDE
     Indication: HYPERPARATHYROIDISM PRIMARY
     Dates: start: 201107, end: 201407
  9. COLECALCIFEROL [Suspect]
     Active Substance: CHOLECALCIFEROL
     Indication: VITAMIN SUPPLEMENTATION
     Route: 065
     Dates: start: 201410, end: 201608
  10. CINACALCET/CINACALCET HYDROCHLORIDE [Suspect]
     Active Substance: CINACALCET\CINACALCET HYDROCHLORIDE
     Indication: HYPERPARATHYROIDISM PRIMARY
     Dosage: 60 MILLIGRAM, QD
  11. ERGOCALCIFEROL. [Suspect]
     Active Substance: ERGOCALCIFEROL
     Indication: VITAMIN D DEFICIENCY
     Dates: start: 201606, end: 201608
  12. CINACALCET/CINACALCET HYDROCHLORIDE [Concomitant]
     Active Substance: CINACALCET\CINACALCET HYDROCHLORIDE
     Indication: HYPERPARATHYROIDISM PRIMARY
     Dates: start: 200705, end: 200912
  13. COLECALCIFEROL [Suspect]
     Active Substance: CHOLECALCIFEROL
     Indication: VITAMIN SUPPLEMENTATION
     Route: 065
     Dates: start: 201410, end: 201608

REACTIONS (7)
  - Hypervitaminosis D [Recovering/Resolving]
  - Product prescribing error [Unknown]
  - Blood parathyroid hormone increased [Unknown]
  - Chronic kidney disease [Unknown]
  - Hypercalcaemia [Recovered/Resolved]
  - Overdose [Unknown]
  - Drug ineffective [Unknown]

NARRATIVE: CASE EVENT DATE: 200705
